FAERS Safety Report 16172083 (Version 1)
Quarter: 2019Q2

REPORT INFORMATION
  Report Type: Spontaneous
  Country: US (occurrence: US)
  Receive Date: 20190409
  Receipt Date: 20190409
  Transmission Date: 20190711
  Serious: Yes (Other)
  Sender: FDA-Public Use
  Company Number: US-TEVA-2019-US-1034288

PATIENT
  Sex: Male

DRUGS (1)
  1. AUSTEDO [Suspect]
     Active Substance: DEUTETRABENAZINE
     Indication: TARDIVE DYSKINESIA
     Dosage: 36 MILLIGRAM DAILY; MORNING 12 MG AND 24 MG AT BEDTIME
     Route: 048

REACTIONS (6)
  - Back pain [Unknown]
  - Hypertension [Unknown]
  - Decreased appetite [Unknown]
  - Feeling abnormal [Unknown]
  - Suicidal ideation [Unknown]
  - Fatigue [Unknown]
